FAERS Safety Report 6788069-0 (Version None)
Quarter: 2010Q2

REPORT INFORMATION
  Report Type: 
  Country: None (occurrence: None)
  Receive Date: 20100623
  Receipt Date: 20080221
  Transmission Date: 20101027
  Serious: No
  Sender: FDA-Public Use
  Company Number: US-PFIZER INC-2007105272

PATIENT
  Sex: Male
  Weight: 44.2 kg

DRUGS (1)
  1. GENOTROPIN [Suspect]
     Indication: GROWTH HORMONE DEFICIENCY
     Route: 058
     Dates: start: 20070815

REACTIONS (2)
  - CONDITION AGGRAVATED [None]
  - OSTEOCHONDROMA [None]
